FAERS Safety Report 8386439-0 (Version None)
Quarter: 2012Q2

REPORT INFORMATION
  Report Type: 
  Country: None (occurrence: None)
  Receive Date: 20120523
  Receipt Date: 20120523
  Transmission Date: 20120825
  Serious: Yes (Life-Threatening, Hospitalization)
  Sender: FDA-Public Use
  Company Number: None

PATIENT
  Age: 11 Month
  Sex: Female
  Weight: 10.2 kg

DRUGS (6)
  1. POTASSIUM CHLORIDE [Concomitant]
  2. CEFTRIAXONE [Suspect]
     Indication: MENINGITIS BACTERIAL
     Dosage: 1000 MG ONE TIME IM
     Route: 030
     Dates: start: 20120302, end: 20120302
  3. XYLOCAINE [Concomitant]
  4. DECADRAON PHOSPHATE [Concomitant]
  5. VANCOMYCIN HCL [Concomitant]
  6. TYLENOL ELIXIR [Concomitant]

REACTIONS (1)
  - DRUG INEFFECTIVE [None]
